FAERS Safety Report 19827852 (Version 2)
Quarter: 2023Q4

REPORT INFORMATION
  Report Type: Spontaneous
  Country: US (occurrence: US)
  Receive Date: 20210914
  Receipt Date: 20231019
  Transmission Date: 20240110
  Serious: Yes (Hospitalization, Other)
  Sender: FDA-Public Use
  Company Number: US-COOPERSURGICAL, INC.-US-2021CPS002705

PATIENT
  Age: 28 Year
  Sex: Female
  Weight: 86.168 kg

DRUGS (5)
  1. PARAGARD T 380A [Suspect]
     Active Substance: COPPER
     Indication: Contraception
     Dosage: UNK
     Route: 015
     Dates: start: 20090903, end: 20191029
  2. ATENOLOL [Concomitant]
     Active Substance: ATENOLOL
     Indication: Product used for unknown indication
     Dosage: 25 MILLIGRAM, QD
     Route: 048
     Dates: start: 20191021
  3. TELMISARTAN AND HYDROCHLOROTHIAZIDE [Concomitant]
     Active Substance: HYDROCHLOROTHIAZIDE\TELMISARTAN
     Indication: Product used for unknown indication
     Dosage: 40 MG/12.5 MG, TABLET, QD
     Route: 048
     Dates: start: 20191021
  4. FLUCELVAX QUADRIVALENT 2017/2018 (INFLUENZA A VIRUS A/DARWIN/11/2021 ( [Concomitant]
     Active Substance: INFLUENZA A VIRUS A/DARWIN/11/2021 (H3N2) ANTIGEN (MDCK CELL DERIVED, PROPIOLACTONE INACTIVATED)\INF
     Indication: Influenza
     Dosage: 0.5 MILLILITER
     Route: 030
     Dates: start: 20191021, end: 20191021
  5. KETOROLAC [Concomitant]
     Active Substance: KETOROLAC TROMETHAMINE
     Indication: Product used for unknown indication
     Dosage: 1 MILLILITER
     Dates: start: 20191022

REACTIONS (17)
  - Road traffic accident [Unknown]
  - Cerebrovascular accident [Unknown]
  - Reproductive complication associated with device [Not Recovered/Not Resolved]
  - Uterine leiomyoma [Recovered/Resolved]
  - Device breakage [Recovered/Resolved]
  - Complication of device removal [Recovered/Resolved]
  - Foreign body in reproductive tract [Recovered/Resolved]
  - Anxiety [Not Recovered/Not Resolved]
  - Depression [Unknown]
  - Emotional distress [Unknown]
  - Procedural haemorrhage [Recovered/Resolved]
  - Contusion [Unknown]
  - Chest pain [Unknown]
  - Vaginal infection [None]
  - Device use issue [Unknown]
  - Dysmenorrhoea [Unknown]
  - Heavy menstrual bleeding [Unknown]

NARRATIVE: CASE EVENT DATE: 20111101
